FAERS Safety Report 4337284-4 (Version None)
Quarter: 2004Q2

REPORT INFORMATION
  Report Type: 
  Country: None (occurrence: None)
  Receive Date: 20040406
  Receipt Date: 20040109
  Transmission Date: 20050107
  Serious: Yes (Other)
  Sender: FDA-Public Use
  Company Number: HQWYE248012JAN04

PATIENT
  Sex: 0

DRUGS (1)
  1. PROTONIX [Suspect]
     Dosage: 40 MG, INTRAVENOUS
     Route: 042

REACTIONS (1)
  - PYREXIA [None]
